FAERS Safety Report 6687631-3 (Version None)
Quarter: 2010Q2

REPORT INFORMATION
  Report Type: 
  Country: None (occurrence: None)
  Receive Date: 20100415
  Receipt Date: 20100408
  Transmission Date: 20101027
  Serious: No
  Sender: FDA-Public Use
  Company Number: 008204

PATIENT
  Sex: Male

DRUGS (2)
  1. PLETAL [Suspect]
     Indication: CAROTID ARTERY THROMBOSIS
     Dosage: ORAL
     Route: 048
  2. DIOVAN [Concomitant]

REACTIONS (1)
  - BLOOD PRESSURE SYSTOLIC DECREASED [None]
